FAERS Safety Report 9188329 (Version 2)
Quarter: 2013Q2

REPORT INFORMATION
  Report Type: Report from Study
  Country: FR (occurrence: FR)
  Receive Date: 20130325
  Receipt Date: 20130520
  Transmission Date: 20140414
  Serious: Yes (Hospitalization, Other)
  Sender: FDA-Public Use
  Company Number: FR-AMGEN-FRACT2013019869

PATIENT
  Age: 76 Year
  Sex: Female
  Weight: 68 kg

DRUGS (10)
  1. PANITUMUMAB [Suspect]
     Indication: GASTROOESOPHAGEAL CANCER
     Dosage: 378 MG, UNK
     Route: 042
     Dates: start: 20120629
  2. OXALIPLATIN [Concomitant]
     Indication: GASTROOESOPHAGEAL CANCER
     Dosage: 150 MG, UNK
     Route: 042
     Dates: start: 20120629
  3. FOLINIC ACID [Concomitant]
     Indication: GASTROOESOPHAGEAL CANCER
     Dosage: 684 MG, UNK
     Route: 042
     Dates: start: 20120629
  4. FLUOROURACIL [Concomitant]
     Indication: GASTROOESOPHAGEAL CANCER
     Dosage: UNK
     Route: 042
     Dates: start: 20120629
  5. COZAAR [Concomitant]
     Indication: HYPERTENSION
     Dosage: UNK
     Route: 048
     Dates: start: 20111026
  6. VASTEN [Concomitant]
     Indication: LIPIDS INCREASED
     Dosage: 20 MG, QD
     Route: 048
     Dates: start: 20111026
  7. KARDEGIC [Concomitant]
     Indication: ANTIPLATELET THERAPY
     Dosage: UNK
     Route: 048
     Dates: start: 20111026
  8. ASPIRIN [Concomitant]
     Dosage: 160 MG, QD
     Route: 048
  9. TARDYFERON [Concomitant]
     Dosage: 80 MG, BID
     Route: 048
     Dates: start: 20120627
  10. PARIET [Concomitant]
     Dosage: 20 MG, QD
     Route: 048

REACTIONS (2)
  - Mucosal inflammation [Recovered/Resolved]
  - Febrile bone marrow aplasia [Recovered/Resolved]
